FAERS Safety Report 10945804 (Version 2)
Quarter: 2015Q2

REPORT INFORMATION
  Report Type: Spontaneous
  Country: CA (occurrence: CA)
  Receive Date: 20150323
  Receipt Date: 20150401
  Transmission Date: 20150821
  Serious: Yes (Other)
  Sender: FDA-Public Use
  Company Number: CA-PFIZER INC-2015095429

PATIENT

DRUGS (6)
  1. FLUCONAZOLE. [Suspect]
     Active Substance: FLUCONAZOLE
     Dosage: 150 MG, 1X/WEEK
     Route: 064
  2. ISONIAZID. [Suspect]
     Active Substance: ISONIAZID
     Dosage: 300 MG, UNK
     Route: 064
  3. MEPREDNISONE [Suspect]
     Active Substance: MEPREDNISONE
     Dosage: 8 MG, 1X/DAY
     Route: 064
  4. RANITIDINE [Suspect]
     Active Substance: RANITIDINE\RANITIDINE HYDROCHLORIDE
     Dosage: 300 MG, UNK
     Route: 064
  5. METHOTREXATE SODIUM. [Suspect]
     Active Substance: METHOTREXATE SODIUM
     Indication: RHEUMATOID ARTHRITIS
     Dosage: 7.5 MG, 1X/WEEK
     Route: 064
  6. VIOXX [Suspect]
     Active Substance: ROFECOXIB
     Dosage: 25 MG, 1X/DAY
     Route: 064

REACTIONS (9)
  - Maternal exposure during pregnancy [Unknown]
  - Cerebral ventricle dilatation [Unknown]
  - Low birth weight baby [Unknown]
  - Foetal growth restriction [Unknown]
  - Congenital skin dimples [Unknown]
  - Apgar score abnormal [Unknown]
  - Finger deformity [Unknown]
  - Talipes [Unknown]
  - Premature baby [Unknown]
